FAERS Safety Report 12807627 (Version 1)
Quarter: 2016Q4

REPORT INFORMATION
  Report Type: Spontaneous
  Country: US (occurrence: US)
  Receive Date: 20161004
  Receipt Date: 20161004
  Transmission Date: 20170207
  Serious: No
  Sender: FDA-Public Use
  Company Number: US-AMGEN-USASP2016026953

PATIENT
  Sex: Female

DRUGS (5)
  1. XGEVA [Suspect]
     Active Substance: DENOSUMAB
     Indication: PRODUCT USED FOR UNKNOWN INDICATION
     Dosage: UNK
     Route: 065
  2. PALZEN [Concomitant]
     Dosage: 0.25 MG, UNK
     Route: 040
  3. XELODA [Concomitant]
     Active Substance: CAPECITABINE
  4. ABRAXANE [Concomitant]
     Active Substance: PACLITAXEL
     Dosage: 170 MG, + 100 ML NS OVER 30 MINUTES
     Route: 042
  5. TEMOSIDE [Concomitant]

REACTIONS (1)
  - Drug effect decreased [Unknown]
